FAERS Safety Report 6463720-3 (Version None)
Quarter: 2009Q4

REPORT INFORMATION
  Report Type: 
  Country: None (occurrence: None)
  Receive Date: 20091130
  Receipt Date: 20091130
  Transmission Date: 20100525
  Serious: Yes (Hospitalization)
  Sender: FDA-Public Use
  Company Number: None

PATIENT
  Age: 62 Year
  Sex: Male
  Weight: 100.1 kg

DRUGS (1)
  1. LISINOPRIL [Suspect]
     Dosage: 40 MG BID PO
     Route: 048
     Dates: start: 20081008, end: 20090916

REACTIONS (9)
  - BLOOD PRESSURE INADEQUATELY CONTROLLED [None]
  - DIABETIC NEPHROPATHY [None]
  - FLUID RETENTION [None]
  - HYPERTENSION [None]
  - OEDEMA [None]
  - PROTEINURIA [None]
  - RENAL FAILURE ACUTE [None]
  - TREATMENT NONCOMPLIANCE [None]
  - TYPE 2 DIABETES MELLITUS [None]
